FAERS Safety Report 6159136-X (Version None)
Quarter: 2009Q2

REPORT INFORMATION
  Report Type: 
  Country: None (occurrence: None)
  Receive Date: 20090417
  Receipt Date: 20090407
  Transmission Date: 20091009
  Serious: Yes (Other)
  Sender: FDA-Public Use
  Company Number: US-JNJCH-2009009808

PATIENT
  Age: 72 Year
  Sex: Male

DRUGS (1)
  1. BENADRYL [Suspect]
     Indication: ASTHMA
     Dosage: TEXT:1 PILL EACH NIGHT
     Route: 048

REACTIONS (2)
  - EXTRAOCULAR MUSCLE PARESIS [None]
  - OFF LABEL USE [None]
